FAERS Safety Report 19468818 (Version 1)
Quarter: 2021Q2

REPORT INFORMATION
  Report Type: Spontaneous
  Country: FR (occurrence: FR)
  Receive Date: 20210628
  Receipt Date: 20210628
  Transmission Date: 20210717
  Serious: Yes (Hospitalization)
  Sender: FDA-Public Use
  Company Number: FR-TEVA-2021-FR-1925942

PATIENT
  Age: 72 Year
  Sex: Male

DRUGS (2)
  1. KETOPROFENE [Suspect]
     Active Substance: KETOPROFEN
     Indication: PAIN
     Dosage: 200 MG
     Route: 048
     Dates: start: 202011, end: 20201218
  2. CEFAZOLINE [Suspect]
     Active Substance: CEFAZOLIN SODIUM
     Indication: ANTIBIOTIC PROPHYLAXIS
     Dosage: 2 G
     Route: 042
     Dates: start: 20201218, end: 20201218

REACTIONS (1)
  - Acute kidney injury [Recovered/Resolved]

NARRATIVE: CASE EVENT DATE: 20201220
